FAERS Safety Report 12820510 (Version 2)
Quarter: 2016Q4

REPORT INFORMATION
  Report Type: Spontaneous
  Country: US (occurrence: US)
  Receive Date: 20161006
  Receipt Date: 20161020
  Transmission Date: 20170207
  Serious: Yes (Hospitalization, Other)
  Sender: FDA-Public Use
  Company Number: US-JAZZ-2016-US-019087

PATIENT
  Age: 56 Year
  Sex: Male

DRUGS (8)
  1. HYDROCODONE [Suspect]
     Active Substance: HYDROCODONE
     Indication: PRODUCT USED FOR UNKNOWN INDICATION
     Dosage: UNK
  2. XYREM [Suspect]
     Active Substance: SODIUM OXYBATE
     Dosage: 3.75 G, BID
     Route: 048
     Dates: start: 200803, end: 20160716
  3. METHADONE [Suspect]
     Active Substance: METHADONE HYDROCHLORIDE
     Indication: PRODUCT USED FOR UNKNOWN INDICATION
     Dosage: UNK
     Dates: end: 20160919
  4. XYREM [Suspect]
     Active Substance: SODIUM OXYBATE
     Indication: NARCOLEPSY
     Dosage: 2.25 G, BID
     Route: 048
     Dates: start: 200702, end: 200703
  5. XYREM [Suspect]
     Active Substance: SODIUM OXYBATE
     Indication: CATAPLEXY
     Dosage: DOSE ADJUSTMENTS
     Route: 048
     Dates: start: 200703, end: 200803
  6. MOTRIN IB [Concomitant]
     Active Substance: IBUPROFEN
     Indication: PRODUCT USED FOR UNKNOWN INDICATION
  7. PROVIGIL [Concomitant]
     Active Substance: MODAFINIL
     Indication: PRODUCT USED FOR UNKNOWN INDICATION
  8. VENLAFAXINE HCL [Concomitant]
     Active Substance: VENLAFAXINE HYDROCHLORIDE
     Indication: PRODUCT USED FOR UNKNOWN INDICATION
     Dosage: UNK
     Dates: start: 20150401

REACTIONS (17)
  - Hypertension [Unknown]
  - Joint dislocation [Recovering/Resolving]
  - Rib fracture [Recovering/Resolving]
  - Internal haemorrhage [Recovering/Resolving]
  - Internal injury [Recovering/Resolving]
  - Intestinal perforation [Recovering/Resolving]
  - Faecaloma [Unknown]
  - Upper limb fracture [Recovering/Resolving]
  - Pulmonary contusion [Recovering/Resolving]
  - Kidney contusion [Recovering/Resolving]
  - Pain [Unknown]
  - Pulmonary embolism [Recovering/Resolving]
  - Pneumothorax [Recovering/Resolving]
  - Foot fracture [Recovering/Resolving]
  - Liver contusion [Recovering/Resolving]
  - Lung perforation [Recovering/Resolving]
  - Road traffic accident [Recovered/Resolved]

NARRATIVE: CASE EVENT DATE: 2016
